FAERS Safety Report 10112189 (Version 1)
Quarter: 2014Q2

REPORT INFORMATION
  Report Type: Spontaneous
  Country: AU (occurrence: AU)
  Receive Date: 20140425
  Receipt Date: 20140425
  Transmission Date: 20141212
  Serious: Yes (Hospitalization)
  Sender: FDA-Public Use
  Company Number: AU-DRREDDYS-GER/AUS/14/0039877

PATIENT
  Age: 66 Year
  Sex: Male
  Weight: 80 kg

DRUGS (5)
  1. AMLODIPINE [Suspect]
     Indication: PRODUCT USED FOR UNKNOWN INDICATION
     Route: 048
  2. METOPROLOL [Suspect]
     Indication: PRODUCT USED FOR UNKNOWN INDICATION
  3. MOXONIDINE [Suspect]
     Indication: PRODUCT USED FOR UNKNOWN INDICATION
  4. OLMESARTAN [Suspect]
     Indication: PRODUCT USED FOR UNKNOWN INDICATION
  5. DABIGATRAN [Suspect]
     Indication: PRODUCT USED FOR UNKNOWN INDICATION

REACTIONS (3)
  - Renal impairment [Unknown]
  - Coagulopathy [Unknown]
  - Intentional overdose [Unknown]
